FAERS Safety Report 7803990-X (Version None)
Quarter: 2011Q4

REPORT INFORMATION
  Report Type: 
  Country: None (occurrence: None)
  Receive Date: 20111010
  Receipt Date: 20110929
  Transmission Date: 20120403
  Serious: Yes (Hospitalization)
  Sender: FDA-Public Use
  Company Number: CL-JNJFOC-20111001945

PATIENT
  Age: 55 Year
  Sex: Female

DRUGS (3)
  1. GABAPENTIN [Concomitant]
     Route: 048
  2. DURAGESIC-100 [Suspect]
     Indication: ANALGESIC THERAPY
     Dosage: HALF OF 50 UG
     Route: 062
     Dates: start: 20110101, end: 20110101
  3. METOCLOPRAMIDE [Concomitant]
     Route: 048

REACTIONS (2)
  - PNEUMONIA ASPIRATION [None]
  - WRONG TECHNIQUE IN DRUG USAGE PROCESS [None]
